FAERS Safety Report 4548325-3 (Version None)
Quarter: 2005Q1

REPORT INFORMATION
  Report Type: 
  Country: None (occurrence: None)
  Receive Date: 20050106
  Receipt Date: 20050106
  Transmission Date: 20050727
  Serious: Yes (Hospitalization)
  Sender: FDA-Public Use
  Company Number: None

PATIENT
  Age: 78 Year
  Sex: Male
  Weight: 108.8633 kg

DRUGS (4)
  1. AZITHROMYCIN [Suspect]
     Indication: NOSOCOMIAL INFECTION
     Dosage: 500 MG    Q DAY   INTRAVENOUS
     Route: 042
     Dates: start: 20041214, end: 20041217
  2. AZITHROMYCIN [Suspect]
     Indication: PNEUMONIA
     Dosage: 500 MG    Q DAY   INTRAVENOUS
     Route: 042
     Dates: start: 20041214, end: 20041217
  3. ZOSYN [Suspect]
     Indication: NOSOCOMIAL INFECTION
     Dosage: 3.375 GM   Q 6 HRS   INTRAVENOU
     Route: 042
     Dates: start: 20041215, end: 20041217
  4. ZOSYN [Suspect]
     Indication: PNEUMONIA
     Dosage: 3.375 GM   Q 6 HRS   INTRAVENOU
     Route: 042
     Dates: start: 20041215, end: 20041217

REACTIONS (1)
  - DIARRHOEA [None]
